FAERS Safety Report 6765389-7 (Version None)
Quarter: 2010Q2

REPORT INFORMATION
  Report Type: 
  Country: None (occurrence: None)
  Receive Date: 20100609
  Receipt Date: 20100525
  Transmission Date: 20101027
  Serious: Yes (Hospitalization)
  Sender: FDA-Public Use
  Company Number: 012707

PATIENT
  Sex: Female
  Weight: 89.7 kg

DRUGS (15)
  1. KEPPRA [Suspect]
  2. UNKNOWN [Suspect]
     Indication: PROPHYLAXIS
     Dosage: SEE IMAGE
     Dates: start: 20100203, end: 20100209
  3. UNKNOWN [Suspect]
     Indication: PROPHYLAXIS
     Dosage: SEE IMAGE
     Dates: start: 20100210, end: 20100216
  4. UNKNOWN [Suspect]
     Indication: PROPHYLAXIS
     Dosage: SEE IMAGE
     Dates: start: 20100217, end: 20100223
  5. UNKNOWN [Suspect]
     Indication: PROPHYLAXIS
     Dosage: SEE IMAGE
     Dates: start: 20100224
  6. UNKNOWN [Suspect]
     Dosage: (QD, 5 DAYS A WEEK, X 3 WEEKS , ROUTE - EXTERNAL BEAM , 2D)
     Dates: start: 20100203, end: 20100219
  7. DECADRON [Suspect]
  8. MS CONTIN [Suspect]
  9. REMERON [Suspect]
  10. DILANTIN [Suspect]
  11. LEVAQUIN [Suspect]
  12. REGLAN [Suspect]
  13. ADVAIR HFA [Suspect]
  14. ALBUTEROL [Suspect]
  15. UNKNOWN [Suspect]

REACTIONS (2)
  - MOBILITY DECREASED [None]
  - PULMONARY EMBOLISM [None]
